FAERS Safety Report 7418338-2 (Version None)
Quarter: 2011Q2

REPORT INFORMATION
  Report Type: 
  Country: None (occurrence: None)
  Receive Date: 20110415
  Receipt Date: 20110405
  Transmission Date: 20111010
  Serious: Yes (Other)
  Sender: FDA-Public Use
  Company Number: A0921566A

PATIENT
  Age: 17 Year
  Sex: Male

DRUGS (1)
  1. PAXIL [Suspect]
     Dosage: 60MG UNKNOWN
     Route: 065

REACTIONS (4)
  - HEADACHE [None]
  - BRAIN INJURY [None]
  - ANXIETY [None]
  - TENSION HEADACHE [None]
